FAERS Safety Report 4277504-8 (Version None)
Quarter: 2004Q1

REPORT INFORMATION
  Report Type: 
  Country: None (occurrence: None)
  Receive Date: 20040122
  Receipt Date: 20031219
  Transmission Date: 20041129
  Serious: Yes (Other)
  Sender: FDA-Public Use
  Company Number: PHFR2003GB04893

PATIENT
  Age: 54 Year
  Sex: Male

DRUGS (6)
  1. CLOZARIL [Suspect]
     Indication: SCHIZOPHRENIA
     Dosage: 100 MG, BID
     Route: 048
     Dates: start: 20031120
  2. MOVICOL [Concomitant]
     Indication: CONSTIPATION
     Route: 048
     Dates: start: 20031227
  3. ORPHENADRINE HYDROCHLORIDE FILM TAB [Concomitant]
     Indication: SALIVARY HYPERSECRETION
     Dosage: 50 MG, TID
     Route: 065
     Dates: start: 20040105
  4. ERYTHROMYCIN [Concomitant]
     Indication: PNEUMONIA
     Dosage: 500 MG, TID
     Dates: start: 20040106, end: 20040111
  5. BENZHEXOL [Concomitant]
     Indication: SALIVARY HYPERSECRETION
     Dosage: 2 MG, TID
     Route: 048
     Dates: start: 20031231, end: 20040105
  6. AUGMENTIN                               /UNK/ [Concomitant]
     Indication: LOWER RESPIRATORY TRACT INFECTION
     Dosage: 625 MG, TID
     Route: 048
     Dates: start: 20031215, end: 20031220

REACTIONS (9)
  - BODY TEMPERATURE INCREASED [None]
  - C-REACTIVE PROTEIN INCREASED [None]
  - COUGH [None]
  - LOWER RESPIRATORY TRACT INFECTION [None]
  - PHARYNGITIS [None]
  - PHARYNGOLARYNGEAL PAIN [None]
  - RED BLOOD CELL SEDIMENTATION RATE INCREASED [None]
  - SALIVARY HYPERSECRETION [None]
  - TUBERCULOSIS [None]
